FAERS Safety Report 23960569 (Version 1)
Quarter: 2024Q2

REPORT INFORMATION
  Report Type: Spontaneous
  Country: AU (occurrence: AU)
  Receive Date: 20240611
  Receipt Date: 20240611
  Transmission Date: 20240716
  Serious: Yes (Hospitalization)
  Sender: FDA-Public Use
  Company Number: AU-SANDOZ-SDZ2023AU053592

PATIENT
  Age: 60 Year
  Sex: Male

DRUGS (11)
  1. CELECOXIB [Suspect]
     Active Substance: CELECOXIB
     Indication: Analgesic therapy
     Route: 065
  2. CELECOXIB [Suspect]
     Active Substance: CELECOXIB
     Indication: Analgesic therapy
     Route: 065
  3. OXYCODONE [Suspect]
     Active Substance: OXYCODONE\OXYCODONE HYDROCHLORIDE
     Indication: Analgesic therapy
     Route: 065
  4. OXYCODONE [Suspect]
     Active Substance: OXYCODONE\OXYCODONE HYDROCHLORIDE
     Indication: Analgesic therapy
     Route: 065
  5. ACETAMINOPHEN [Suspect]
     Active Substance: ACETAMINOPHEN
     Indication: Analgesic therapy
     Route: 065
  6. PANTOPRAZOLE SODIUM [Suspect]
     Active Substance: PANTOPRAZOLE SODIUM
     Indication: Gastrooesophageal reflux disease
     Dosage: 40 MG ( INTERVAL)
     Route: 065
  7. AMITRIPTYLINE [Concomitant]
     Active Substance: AMITRIPTYLINE
     Indication: Product used for unknown indication
     Dosage: 10 MG (INTERVAL: 1)
     Route: 065
  8. CEFTRIAXONE [Concomitant]
     Active Substance: CEFTRIAXONE\CEFTRIAXONE SODIUM
     Indication: Product used for unknown indication
     Dosage: 1 G, QD
     Route: 042
  9. CEFTRIAXONE [Concomitant]
     Active Substance: CEFTRIAXONE\CEFTRIAXONE SODIUM
     Dosage: 2 G, QD
     Route: 065
  10. ENOXAPARIN [Concomitant]
     Active Substance: ENOXAPARIN
     Indication: Acute myocardial infarction
     Dosage: 80 MG, BID
     Route: 058
  11. METOPROLOL [Concomitant]
     Active Substance: METOPROLOL
     Indication: Product used for unknown indication
     Dosage: 50 MG ( INTERVAL: 1)
     Route: 065

REACTIONS (12)
  - Coronary artery disease [Recovered/Resolved]
  - Salmonella bacteraemia [Recovered/Resolved]
  - Deep vein thrombosis [Recovered/Resolved]
  - Acute myocardial infarction [Recovered/Resolved]
  - Haematoma [Recovered/Resolved]
  - Infective aneurysm [Recovered/Resolved]
  - Mitral valve incompetence [Recovered/Resolved]
  - Mobility decreased [Recovered/Resolved]
  - Tricuspid valve incompetence [Recovered/Resolved]
  - Vascular pseudoaneurysm [Recovered/Resolved]
  - Vascular pseudoaneurysm ruptured [Recovered/Resolved]
  - Drug ineffective [Unknown]
